FAERS Safety Report 17120658 (Version 1)
Quarter: 2019Q4

REPORT INFORMATION
  Report Type: Spontaneous
  Country: GB (occurrence: GB)
  Receive Date: 20191206
  Receipt Date: 20191206
  Transmission Date: 20200122
  Serious: Yes (Hospitalization)
  Sender: FDA-Public Use
  Company Number: GB-TEVA-2019-GB-1147009

PATIENT

DRUGS (9)
  1. PREGABALIN. [Concomitant]
     Active Substance: PREGABALIN
  2. DABIGATRAN [Suspect]
     Active Substance: DABIGATRAN
     Route: 065
  3. REPAGLINIDE. [Concomitant]
     Active Substance: REPAGLINIDE
  4. CLARITHROMYCIN. [Suspect]
     Active Substance: CLARITHROMYCIN
     Route: 065
  5. ISOSORBIDE MONONITRATE. [Concomitant]
     Active Substance: ISOSORBIDE MONONITRATE
  6. FUROSEMIDE. [Concomitant]
     Active Substance: FUROSEMIDE
  7. AMOXICILLIN. [Concomitant]
     Active Substance: AMOXICILLIN
  8. ESOMEPRAZOLE. [Concomitant]
     Active Substance: ESOMEPRAZOLE MAGNESIUM
  9. OXYCODONE [Concomitant]
     Active Substance: OXYCODONE

REACTIONS (3)
  - Melaena [Recovered/Resolved]
  - Haemoglobin decreased [Recovered/Resolved]
  - Drug interaction [Unknown]
